FAERS Safety Report 7959255-9 (Version None)
Quarter: 2011Q4

REPORT INFORMATION
  Report Type: 
  Country: None (occurrence: None)
  Receive Date: 20111206
  Receipt Date: 20111130
  Transmission Date: 20120403
  Serious: Yes (Hospitalization)
  Sender: FDA-Public Use
  Company Number: ES-PFIZER INC-2011293220

PATIENT
  Age: 57 Year
  Sex: Male

DRUGS (6)
  1. DOLANTINA [Interacting]
     Indication: POSTOPERATIVE ANALGESIA
     Dosage: 15 MG, 1X/DAY
     Route: 065
     Dates: start: 20110802, end: 20110813
  2. MEROPENEM [Concomitant]
     Route: 042
  3. ANIDULAFUNGIN [Concomitant]
  4. AMIKACIN [Concomitant]
  5. PROPOFOL [Concomitant]
  6. ZYVOX [Suspect]
     Indication: ENTEROCOCCAL BACTERAEMIA
     Dosage: 600 MG, 2X/DAY
     Route: 042
     Dates: start: 20110811, end: 20110813

REACTIONS (2)
  - DRUG INTERACTION [None]
  - SEROTONIN SYNDROME [None]
